FAERS Safety Report 9337528 (Version 2)
Quarter: 2013Q2

REPORT INFORMATION
  Report Type: Spontaneous
  Country: US (occurrence: US)
  Receive Date: 20130607
  Receipt Date: 20130614
  Transmission Date: 20140414
  Serious: Yes (Other)
  Sender: FDA-Public Use
  Company Number: CHPA2013US009386

PATIENT
  Age: 40 Year
  Sex: Female

DRUGS (2)
  1. MAALOX ANTACID/ANTIGAS RS LIQ SMTHCHERRY [Suspect]
     Indication: ABDOMINAL DISCOMFORT
     Dosage: 3 TSP, QD
     Route: 048
     Dates: end: 201204
  2. NAPROXEN [Suspect]
     Dosage: UNK, UNK

REACTIONS (3)
  - Gastritis [Unknown]
  - Ulcer [Unknown]
  - Back pain [Unknown]
